FAERS Safety Report 21023790 (Version 2)
Quarter: 2022Q3

REPORT INFORMATION
  Report Type: Report from Study
  Country: US (occurrence: US)
  Receive Date: 20220629
  Receipt Date: 20220711
  Transmission Date: 20221027
  Serious: Yes (Hospitalization, Other)
  Sender: FDA-Public Use
  Company Number: US-BAYER-2022A078631

PATIENT
  Age: 48 Year
  Sex: Female
  Weight: 49.887 kg

DRUGS (4)
  1. ADEMPAS [Suspect]
     Active Substance: RIOCIGUAT
     Indication: Pulmonary arterial hypertension
     Dosage: 0.5 MG, TID
     Route: 048
     Dates: start: 20220331
  2. TYVASO [Concomitant]
     Active Substance: TREPROSTINIL
     Dosage: UNK
  3. OXYGEN [Concomitant]
     Active Substance: OXYGEN
  4. REMODULIN [Concomitant]
     Active Substance: TREPROSTINIL

REACTIONS (13)
  - Pneumonia [None]
  - Syncope [None]
  - Hospitalisation [None]
  - Oedema [None]
  - Abdominal distension [Not Recovered/Not Resolved]
  - Feeling abnormal [None]
  - Poor quality sleep [Not Recovered/Not Resolved]
  - Joint swelling [None]
  - Peripheral swelling [None]
  - Joint stiffness [None]
  - Headache [None]
  - Dizziness [None]
  - Dyspepsia [None]
